FAERS Safety Report 25956743 (Version 1)
Quarter: 2025Q4

REPORT INFORMATION
  Report Type: Spontaneous
  Country: US (occurrence: US)
  Receive Date: 20251024
  Receipt Date: 20251024
  Transmission Date: 20260117
  Serious: No
  Sender: BAYER HEALTHCARE LLC
  Company Number: US-BAYER-2025A140754

PATIENT
  Age: 23 Year
  Sex: Female

DRUGS (1)
  1. MIRALAX [Suspect]
     Active Substance: POLYETHYLENE GLYCOL 3350
     Indication: Gastrointestinal disorder
     Dosage: ABOUT 14 GRAMS IN 10 OZ OF WATER, BUT I ONLY TOOK 2 DRINKS, I DIDN^T FINISH IT
     Route: 048
     Dates: start: 202403, end: 20251022

REACTIONS (2)
  - Expired product administered [None]
  - Maternal exposure during pregnancy [None]
